FAERS Safety Report 11836387 (Version 1)
Quarter: 2015Q4

REPORT INFORMATION
  Report Type: Spontaneous
  Country: US (occurrence: None)
  Receive Date: 20151214
  Receipt Date: 20151214
  Transmission Date: 20160305
  Serious: Yes (Other)
  Sender: FDA-Public Use
  Company Number: None

PATIENT
  Age: 68 Year
  Sex: Male

DRUGS (1)
  1. TACROLIMUS. [Suspect]
     Active Substance: TACROLIMUS
     Indication: LIVER TRANSPLANT
     Dosage: 1
     Route: 048
     Dates: start: 20151017

REACTIONS (4)
  - Fatigue [None]
  - Condition aggravated [None]
  - Product substitution issue [None]
  - Abdominal pain [None]

NARRATIVE: CASE EVENT DATE: 20151209
